FAERS Safety Report 7532925-2 (Version None)
Quarter: 2011Q2

REPORT INFORMATION
  Report Type: 
  Country: None (occurrence: None)
  Receive Date: 20110607
  Receipt Date: 20110607
  Transmission Date: 20111010
  Serious: No
  Sender: FDA-Public Use
  Company Number: None

PATIENT
  Age: 60 Year
  Sex: Female
  Weight: 47.6277 kg

DRUGS (1)
  1. LASTACAFT [Suspect]
     Indication: HYPERSENSITIVITY
     Dosage: 1 DROP ONCE A DAY OPHTHALMIC
     Route: 047
     Dates: start: 20110401, end: 20110602

REACTIONS (2)
  - OCULAR HYPERAEMIA [None]
  - EYE PAIN [None]
